FAERS Safety Report 7514634-9 (Version None)
Quarter: 2011Q2

REPORT INFORMATION
  Report Type: 
  Country: None (occurrence: None)
  Receive Date: 20110526
  Receipt Date: 20110526
  Transmission Date: 20111010
  Serious: Yes (Other)
  Sender: FDA-Public Use
  Company Number: None

PATIENT
  Sex: Female
  Weight: 64.4108 kg

DRUGS (1)
  1. EVISTA [Suspect]
     Indication: BONE LOSS
     Dosage: 60 MG DAILY SWALLOWED WITH H20
     Route: 048

REACTIONS (3)
  - CLUMSINESS [None]
  - FEELING ABNORMAL [None]
  - FALL [None]
